FAERS Safety Report 24440799 (Version 2)
Quarter: 2024Q4

REPORT INFORMATION
  Report Type: Report from Study
  Country: DE (occurrence: DE)
  Receive Date: 20241016
  Receipt Date: 20241017
  Transmission Date: 20250115
  Serious: No
  Sender: ROCHE
  Company Number: DE-ROCHE-3398828

PATIENT
  Age: 2 Year
  Sex: Male
  Weight: 18.0 kg

DRUGS (3)
  1. EMICIZUMAB [Suspect]
     Active Substance: EMICIZUMAB
     Indication: Haemophilia A without inhibitors
     Route: 058
     Dates: start: 20220511, end: 20220606
  2. EMICIZUMAB [Suspect]
     Active Substance: EMICIZUMAB
     Route: 058
     Dates: start: 20220613
  3. HAEMOCTIN [Concomitant]
     Route: 042
     Dates: start: 202112, end: 202202

REACTIONS (1)
  - Fall [Unknown]

NARRATIVE: CASE EVENT DATE: 20230626
